FAERS Safety Report 13928390 (Version 1)
Quarter: 2017Q3

REPORT INFORMATION
  Report Type: Spontaneous
  Country: US (occurrence: None)
  Receive Date: 20170901
  Receipt Date: 20170901
  Transmission Date: 20171127
  Serious: Yes (Death, Hospitalization, Disabling)
  Sender: FDA-Public Use
  Company Number: None

PATIENT
  Age: 38 Year
  Sex: Male
  Weight: 160 kg

DRUGS (9)
  1. LISINOPRIL. [Concomitant]
     Active Substance: LISINOPRIL
  2. VIT C [Concomitant]
  3. RISPERDAL [Suspect]
     Active Substance: RISPERIDONE
     Indication: SCHIZOAFFECTIVE DISORDER BIPOLAR TYPE
     Dosage: 1 MORN BED MOUTH
     Route: 048
     Dates: start: 2006, end: 20161117
  4. RISPERDAL [Suspect]
     Active Substance: RISPERIDONE
     Indication: MENTAL DISORDER
     Dosage: 1 MORN BED MOUTH
     Route: 048
     Dates: start: 2006, end: 20161117
  5. LITHIUM. [Concomitant]
     Active Substance: LITHIUM
  6. PALIPERDONE [Concomitant]
     Active Substance: PALIPERIDONE
  7. GRANTAP [Concomitant]
  8. PALIPERDENE [Concomitant]
  9. B12 VITAMINS [Concomitant]

REACTIONS (5)
  - Cold sweat [None]
  - Hyperhidrosis [None]
  - Choking [None]
  - Nasal disorder [None]
  - Feeling abnormal [None]

NARRATIVE: CASE EVENT DATE: 2011
